FAERS Safety Report 24126772 (Version 1)
Quarter: 2024Q3

REPORT INFORMATION
  Report Type: Report from Study
  Country: CO (occurrence: CO)
  Receive Date: 20240723
  Receipt Date: 20240723
  Transmission Date: 20241017
  Serious: Yes (Death, Hospitalization)
  Sender: BAYER
  Company Number: CO-BAYER-2024A083433

PATIENT
  Age: 46 Year
  Sex: Female

DRUGS (6)
  1. ADEMPAS [Suspect]
     Active Substance: RIOCIGUAT
     Indication: Pulmonary hypertension
     Dosage: UNK
  2. ADEMPAS [Suspect]
     Active Substance: RIOCIGUAT
     Indication: Pulmonary hypertension
     Dosage: 2.5 MG, Q8HR
     Dates: start: 20230919, end: 20240318
  3. FUROSEMIDE [Concomitant]
     Active Substance: FUROSEMIDE
  4. ENALAPRIL [Concomitant]
     Active Substance: ENALAPRIL
  5. CARVEDILOL [Concomitant]
     Active Substance: CARVEDILOL
  6. ACETAMINOPHEN [Concomitant]
     Active Substance: ACETAMINOPHEN

REACTIONS (16)
  - Ascites [Fatal]
  - Liver injury [Not Recovered/Not Resolved]
  - Cough [Not Recovered/Not Resolved]
  - Cardiomegaly [Unknown]
  - Dyspnoea [Not Recovered/Not Resolved]
  - Oliguria [Not Recovered/Not Resolved]
  - Vomiting [Not Recovered/Not Resolved]
  - Asphyxia [Not Recovered/Not Resolved]
  - Dependence on oxygen therapy [Fatal]
  - Hepatomegaly [Fatal]
  - Inflammation [Fatal]
  - Abdominal pain [Fatal]
  - Dysuria [Fatal]
  - Fluid intake reduced [Fatal]
  - Cardio-respiratory arrest [Fatal]
  - Inappropriate schedule of product administration [Unknown]

NARRATIVE: CASE EVENT DATE: 20240101
